FAERS Safety Report 5836534-2 (Version None)
Quarter: 2008Q3

REPORT INFORMATION
  Report Type: 
  Country: None (occurrence: None)
  Receive Date: 20080807
  Receipt Date: 20080728
  Transmission Date: 20090109
  Serious: Yes (Other)
  Sender: FDA-Public Use
  Company Number: DE-ALLERGAN-0809198US

PATIENT
  Sex: Female

DRUGS (4)
  1. BOTOX [Suspect]
     Indication: ATONIC URINARY BLADDER
     Dosage: 400 UNITS, SINGLE
     Route: 030
     Dates: start: 20080501, end: 20080501
  2. BOTOX [Suspect]
     Indication: ADVERSE DRUG REACTION
  3. UNSPECIFIED UROLOGIC MEDICATION [Concomitant]
     Indication: DRUG USE FOR UNKNOWN INDICATION
  4. PROPOFOL [Concomitant]
     Indication: ANAESTHESIA
     Dosage: SHORT TIME
     Dates: start: 20080501, end: 20080501

REACTIONS (3)
  - BLOOD CREATINE PHOSPHOKINASE INCREASED [None]
  - MUSCULAR WEAKNESS [None]
  - MYALGIA [None]
